FAERS Safety Report 6511062-X (Version None)
Quarter: 2009Q4

REPORT INFORMATION
  Report Type: 
  Country: None (occurrence: None)
  Receive Date: 20091222
  Receipt Date: 20090324
  Transmission Date: 20100525
  Serious: No
  Sender: FDA-Public Use
  Company Number: US-ASTRAZENECA-2009UW04772

PATIENT
  Age: 69 Year
  Sex: Male
  Weight: 95.3 kg

DRUGS (2)
  1. CRESTOR [Suspect]
     Route: 048
     Dates: start: 20090105
  2. ASPIRIN [Concomitant]

REACTIONS (5)
  - DIZZINESS [None]
  - EPISTAXIS [None]
  - EYE PRURITUS [None]
  - NEPHROLITHIASIS [None]
  - PRURITUS [None]
